FAERS Safety Report 5188013-6 (Version None)
Quarter: 2006Q4

REPORT INFORMATION
  Report Type: 
  Country: None (occurrence: None)
  Receive Date: 20061221
  Receipt Date: 20060720
  Transmission Date: 20070319
  Serious: Yes (Death, Hospitalization)
  Sender: FDA-Public Use
  Company Number: JP-BRISTOL-MYERS SQUIBB COMPANY-13449228

PATIENT
  Age: 62 Year
  Sex: Female

DRUGS (16)
  1. VEPESID [Suspect]
     Indication: LYMPHOMA
     Route: 041
     Dates: start: 20060120, end: 20060123
  2. CARBOPLATIN [Suspect]
     Indication: LYMPHOMA
     Route: 041
     Dates: start: 20060101, end: 20060101
  3. CYCLOPHOSPHAMIDE [Suspect]
     Indication: LYMPHOMA
     Dates: start: 20060101, end: 20060101
  4. CISPLATIN MARUKO [Suspect]
     Indication: LYMPHOMA
     Route: 041
     Dates: start: 20060120, end: 20060123
  5. CYMERIN [Suspect]
     Indication: LYMPHOMA
     Dates: start: 20060101, end: 20060101
  6. CYLOCIDE [Suspect]
     Indication: LYMPHOMA
     Route: 041
     Dates: start: 20060124, end: 20060124
  7. BACTRIM [Suspect]
     Indication: INFECTION PROPHYLAXIS
     Route: 048
     Dates: start: 20060126
  8. SOLU-MEDROL [Concomitant]
     Indication: LYMPHOMA
     Route: 041
     Dates: start: 20051101, end: 20060124
  9. RITUXAN [Concomitant]
     Route: 041
     Dates: start: 20051101, end: 20060119
  10. MAGLAX [Concomitant]
     Route: 048
     Dates: start: 20060120
  11. PARIET [Concomitant]
     Route: 048
     Dates: start: 20060123
  12. MEYLON [Concomitant]
     Route: 041
     Dates: start: 20051101, end: 20060124
  13. KYTRIL [Concomitant]
     Route: 041
     Dates: start: 20051101, end: 20060124
  14. POLARAMINE [Concomitant]
     Route: 048
     Dates: start: 20051101
  15. CALONAL [Concomitant]
     Route: 048
     Dates: start: 20051101
  16. AMOBAN [Concomitant]
     Route: 048
     Dates: start: 20050115, end: 20050323

REACTIONS (4)
  - HAEMOGLOBIN DECREASED [None]
  - PLATELET COUNT DECREASED [None]
  - VENOOCCLUSIVE LIVER DISEASE [None]
  - WHITE BLOOD CELL COUNT DECREASED [None]
